FAERS Safety Report 8431880-0 (Version None)
Quarter: 2012Q2

REPORT INFORMATION
  Report Type: 
  Country: None (occurrence: None)
  Receive Date: 20120607
  Receipt Date: 20120607
  Transmission Date: 20120825
  Serious: Yes (Disabling)
  Sender: FDA-Public Use
  Company Number: None

PATIENT
  Age: 70 Year
  Sex: Male
  Weight: 106.1417 kg

DRUGS (3)
  1. DALIRESP [Suspect]
     Indication: CHRONIC OBSTRUCTIVE PULMONARY DISEASE
     Dosage: 500 MCG, 1, PO
     Route: 048
     Dates: start: 20120425, end: 20120501
  2. HYPERIMMUNE EGG [Concomitant]
  3. PREDNISONE PACK [Concomitant]

REACTIONS (4)
  - DIARRHOEA [None]
  - INSOMNIA [None]
  - ARTHRALGIA [None]
  - VASCULITIS [None]
